FAERS Safety Report 5341931-8 (Version None)
Quarter: 2007Q2

REPORT INFORMATION
  Report Type: 
  Country: None (occurrence: None)
  Receive Date: 20070601
  Receipt Date: 20070523
  Transmission Date: 20071010
  Serious: Yes (Hospitalization)
  Sender: FDA-Public Use
  Company Number: FR-ELI_LILLY_AND_COMPANY-FR200705006512

PATIENT
  Age: 74 Year
  Sex: Female

DRUGS (11)
  1. FORTEO [Suspect]
     Indication: OSTEOPOROSIS
     Dosage: 20 UG, DAILY (1/D)
     Route: 058
     Dates: start: 20070401
  2. AMLOR [Concomitant]
  3. TAHOR [Concomitant]
  4. DETENSIEL [Concomitant]
  5. LASIX [Concomitant]
  6. TRAMADOL HCL [Concomitant]
  7. STABLON [Concomitant]
  8. KARDEGIC [Concomitant]
  9. PLAVIX [Concomitant]
  10. AZATHIOPRINE SODIUM [Concomitant]
  11. OMEPRAZOLE [Concomitant]

REACTIONS (1)
  - CORONARY ARTERY DISEASE [None]
